FAERS Safety Report 22912188 (Version 3)
Quarter: 2023Q4

REPORT INFORMATION
  Report Type: Report from Study
  Country: KR (occurrence: KR)
  Receive Date: 20230906
  Receipt Date: 20231018
  Transmission Date: 20240110
  Serious: Yes (Hospitalization)
  Sender: FDA-Public Use
  Company Number: KR-PFIZER INC-202300006985

PATIENT
  Age: 79 Year
  Sex: Male
  Weight: 67 kg

DRUGS (4)
  1. ELRANATAMAB [Suspect]
     Active Substance: ELRANATAMAB
     Indication: Plasma cell myeloma
     Dosage: 12 MG, ONCE
     Route: 058
     Dates: start: 20221020, end: 20221020
  2. ELRANATAMAB [Suspect]
     Active Substance: ELRANATAMAB
     Dosage: 32 MG, ONCE
     Route: 058
     Dates: start: 20221024, end: 20221024
  3. ELRANATAMAB [Suspect]
     Active Substance: ELRANATAMAB
     Dosage: 76 MG, EVERY WEEK
     Route: 058
     Dates: start: 20221027, end: 20221229
  4. DARATUMUMAB [Suspect]
     Active Substance: DARATUMUMAB
     Indication: Plasma cell myeloma
     Dosage: 1800 MG, EVERY WEEK
     Route: 058
     Dates: start: 20221103, end: 20221229

REACTIONS (1)
  - Leukoencephalopathy [Not Recovered/Not Resolved]

NARRATIVE: CASE EVENT DATE: 20230105
